FAERS Safety Report 5040646-3 (Version None)
Quarter: 2006Q2

REPORT INFORMATION
  Report Type: 
  Country: None (occurrence: None)
  Receive Date: 20060630
  Receipt Date: 20060619
  Transmission Date: 20061013
  Serious: Yes (Life-Threatening)
  Sender: FDA-Public Use
  Company Number: SEWYE751520JUN06

PATIENT
  Sex: Female

DRUGS (4)
  1. ENBREL [Suspect]
     Indication: PSORIASIS
     Dosage: 25 MG, TWICE A WEEK
     Route: 058
     Dates: start: 20050514
  2. SANDIMMUNE [Concomitant]
     Dosage: 150 MG/D OR 2,5 MG/KG
     Dates: start: 20041103, end: 20041203
  3. CETIRIZINE [Concomitant]
     Indication: SEASONAL ALLERGY
  4. METHOTREXATE [Concomitant]
     Dosage: 7.5MG/W WAS INCREASED GRADUALLY UP TO 15MG/W
     Dates: start: 20040601, end: 20041026

REACTIONS (5)
  - COUGH [None]
  - FOOD ALLERGY [None]
  - ORAL PRURITUS [None]
  - RESPIRATION ABNORMAL [None]
  - SWOLLEN TONGUE [None]
